FAERS Safety Report 13272768 (Version 2)
Quarter: 2017Q1

REPORT INFORMATION
  Report Type: Spontaneous
  Country: US (occurrence: US)
  Receive Date: 20170227
  Receipt Date: 20170303
  Transmission Date: 20170428
  Serious: No
  Sender: FDA-Public Use
  Company Number: US-PFIZER INC-2017083069

PATIENT
  Age: 48 Year
  Sex: Female
  Weight: 59 kg

DRUGS (2)
  1. GABAPENTIN. [Suspect]
     Active Substance: GABAPENTIN
     Indication: NEURALGIA
     Dosage: 100 MG, 1X/DAY
     Dates: start: 20170103
  2. LOSARTAN. [Concomitant]
     Active Substance: LOSARTAN
     Indication: HYPERTENSION
     Dosage: 25 MG, 1X/DAY

REACTIONS (3)
  - Product use issue [Unknown]
  - Eye pain [Recovered/Resolved]
  - Sleep terror [Recovered/Resolved]
